FAERS Safety Report 8741985 (Version 2)
Quarter: 2013Q4

REPORT INFORMATION
  Report Type: Spontaneous
  Country: JP (occurrence: JP)
  Receive Date: 20120824
  Receipt Date: 20131106
  Transmission Date: 20140711
  Serious: Yes (Other)
  Sender: FDA-Public Use
  Company Number: JP-009507513-1208JPN007915

PATIENT
  Sex: 0

DRUGS (1)
  1. PEGINTRON [Suspect]
     Dosage: DOSAGE IS UNCERTAIN DURING A DAY
     Route: 058

REACTIONS (1)
  - Cerebral infarction [Unknown]
